FAERS Safety Report 20615529 (Version 2)
Quarter: 2022Q2

REPORT INFORMATION
  Report Type: Spontaneous
  Country: IE (occurrence: IE)
  Receive Date: 20220321
  Receipt Date: 20220408
  Transmission Date: 20220721
  Serious: Yes (Hospitalization, Other)
  Sender: FDA-Public Use
  Company Number: None

PATIENT
  Age: 24 Year
  Sex: Female
  Weight: 40 kg

DRUGS (3)
  1. ADALIMUMAB [Suspect]
     Active Substance: ADALIMUMAB
     Indication: Colitis
     Dosage: 40 MILLIGRAM, QWK
     Route: 058
     Dates: start: 20210304, end: 20220304
  2. PENTASA [Concomitant]
     Active Substance: MESALAMINE
     Indication: Irritable bowel syndrome
     Dosage: 4 GRAM, QD
     Dates: start: 20210301
  3. PENTASA [Concomitant]
     Active Substance: MESALAMINE
     Indication: Colitis
     Dosage: 1000 MILLIGRAM

REACTIONS (4)
  - Relapsing-remitting multiple sclerosis [Not Recovered/Not Resolved]
  - Neuralgia [Unknown]
  - Weight decreased [Unknown]
  - Migraine [Unknown]

NARRATIVE: CASE EVENT DATE: 20211101
